FAERS Safety Report 13426431 (Version 3)
Quarter: 2018Q1

REPORT INFORMATION
  Report Type: Spontaneous
  Country: US (occurrence: US)
  Receive Date: 20170411
  Receipt Date: 20180312
  Transmission Date: 20180508
  Serious: No
  Sender: FDA-Public Use
  Company Number: US-ASTRAZENECA-2017SE37229

PATIENT
  Sex: Female

DRUGS (2)
  1. PULMICORT FLEXHALER [Suspect]
     Active Substance: BUDESONIDE
     Indication: ASTHMA
     Route: 055
     Dates: start: 2006
  2. PULMICORT FLEXHALER [Suspect]
     Active Substance: BUDESONIDE
     Indication: ASTHMA
     Route: 055
     Dates: start: 201505

REACTIONS (8)
  - Device issue [Unknown]
  - Chest discomfort [Unknown]
  - Drug ineffective [Unknown]
  - Underdose [Unknown]
  - Product cleaning inadequate [Unknown]
  - Intentional product misuse [Unknown]
  - Asthma [Unknown]
  - Cough [Unknown]
